FAERS Safety Report 19493151 (Version 1)
Quarter: 2021Q3

REPORT INFORMATION
  Report Type: Spontaneous
  Country: CN (occurrence: CN)
  Receive Date: 20210705
  Receipt Date: 20210705
  Transmission Date: 20211014
  Serious: Yes (Hospitalization, Other)
  Sender: FDA-Public Use
  Company Number: CN-PFIZER INC-2021777265

PATIENT
  Age: 59 Year
  Sex: Male
  Weight: 74 kg

DRUGS (1)
  1. CYTARABINE. [Suspect]
     Active Substance: CYTARABINE
     Indication: ACUTE MYELOID LEUKAEMIA
     Dosage: 3 G, 2X/DAY
     Dates: start: 20210605, end: 20210607

REACTIONS (7)
  - Blood potassium decreased [Recovering/Resolving]
  - C-reactive protein increased [Recovering/Resolving]
  - Granulocytopenia [Recovering/Resolving]
  - Myelosuppression [Recovering/Resolving]
  - Pyrexia [Recovering/Resolving]
  - Palpitations [Recovering/Resolving]
  - Haemodynamic instability [Recovering/Resolving]

NARRATIVE: CASE EVENT DATE: 20210616
